FAERS Safety Report 12341364 (Version 5)
Quarter: 2016Q3

REPORT INFORMATION
  Report Type: Spontaneous
  Country: DK (occurrence: CN)
  Receive Date: 20160506
  Receipt Date: 20160920
  Transmission Date: 20161109
  Serious: Yes (Other)
  Sender: FDA-Public Use
  Company Number: CN-FRI-1000084488

PATIENT
  Age: 29 Year
  Sex: Female

DRUGS (2)
  1. CITALOPRAM [Suspect]
     Active Substance: CITALOPRAM HYDROBROMIDE
     Dosage: HALF A TABLET PER DAY
     Route: 065
  2. CITALOPRAM [Suspect]
     Active Substance: CITALOPRAM HYDROBROMIDE
     Indication: ANXIETY
     Dosage: 30 MG
     Route: 048
     Dates: start: 201511

REACTIONS (8)
  - Chest discomfort [Unknown]
  - Hypotension [Unknown]
  - Panic attack [Recovering/Resolving]
  - Abdominal discomfort [Unknown]
  - Fear [Recovering/Resolving]
  - Product use issue [Unknown]
  - Memory impairment [Unknown]
  - Depressed level of consciousness [Recovering/Resolving]

NARRATIVE: CASE EVENT DATE: 2016
